FAERS Safety Report 8565478-0 (Version None)
Quarter: 2012Q3

REPORT INFORMATION
  Report Type: 
  Country: None (occurrence: None)
  Receive Date: 20120803
  Receipt Date: 20120730
  Transmission Date: 20120928
  Serious: Yes (Death, Hospitalization, Other)
  Sender: FDA-Public Use
  Company Number: US-TEVA-351385USA

PATIENT
  Age: 61 Year
  Sex: Male

DRUGS (2)
  1. ISONIAZID [Suspect]
     Indication: LATENT TUBERCULOSIS
     Dosage: 300MG
     Route: 065
  2. ISONIAZID [Suspect]
     Route: 065

REACTIONS (7)
  - HEPATIC FAILURE [None]
  - DRUG-INDUCED LIVER INJURY [None]
  - HEPATOTOXICITY [None]
  - ENCEPHALOPATHY [None]
  - VISUAL IMPAIRMENT [None]
  - LIVER FUNCTION TEST ABNORMAL [None]
  - DEATH [None]
